FAERS Safety Report 8379366-6 (Version None)
Quarter: 2012Q2

REPORT INFORMATION
  Report Type: 
  Country: None (occurrence: None)
  Receive Date: 20120523
  Receipt Date: 20120511
  Transmission Date: 20120825
  Serious: Yes (Hospitalization)
  Sender: FDA-Public Use
  Company Number: CZ-EISAI INC-E7389-02414-CLI-CZ

PATIENT
  Sex: Female
  Weight: 60 kg

DRUGS (1)
  1. EPIRUBICIN HYDROCHLORIDE [Suspect]
     Indication: SARCOMA
     Route: 041
     Dates: start: 20120322

REACTIONS (1)
  - BRONCHOPNEUMONIA [None]
